FAERS Safety Report 7539469-2 (Version None)
Quarter: 2011Q2

REPORT INFORMATION
  Report Type: 
  Country: None (occurrence: None)
  Receive Date: 20110610
  Receipt Date: 20110602
  Transmission Date: 20111010
  Serious: Yes (Other)
  Sender: FDA-Public Use
  Company Number: GB-TEVA-284631ISR

PATIENT
  Age: 47 Year
  Sex: Female
  Weight: 56.5 kg

DRUGS (2)
  1. AMOXICILLIN AND CLAVULANATE POTASSIUM [Suspect]
     Dates: start: 20110331, end: 20110407
  2. AMOXICILLIN AND CLAVULANATE POTASSIUM [Suspect]
     Dates: start: 20110516, end: 20110523

REACTIONS (1)
  - PHOTOSENSITIVITY REACTION [None]
